FAERS Safety Report 9199867 (Version 1)
Quarter: 2013Q1

REPORT INFORMATION
  Report Type: Spontaneous
  Country: JP (occurrence: JP)
  Receive Date: 20130329
  Receipt Date: 20130329
  Transmission Date: 20140127
  Serious: Yes (Hospitalization)
  Sender: FDA-Public Use
  Company Number: JP-ELI_LILLY_AND_COMPANY-JP201210006195

PATIENT
  Sex: Male

DRUGS (2)
  1. BYETTA [Suspect]
     Dosage: UNK UG, UNK
  2. METFORMINE [Concomitant]

REACTIONS (3)
  - Nasopharyngitis [Unknown]
  - Diarrhoea [Unknown]
  - Abdominal pain [Unknown]
